FAERS Safety Report 22086151 (Version 1)
Quarter: 2023Q1

REPORT INFORMATION
  Report Type: Spontaneous
  Country: US (occurrence: US)
  Receive Date: 20230310
  Receipt Date: 20230310
  Transmission Date: 20230418
  Serious: No
  Sender: FDA-Public Use
  Company Number: US-GALDERMA-US2023002925

PATIENT

DRUGS (5)
  1. PROACTIV MD ADAPALENE ACNE TREATMENT [Suspect]
     Active Substance: ADAPALENE
     Indication: Product used for unknown indication
     Dosage: 1 DOSAGE FORM, 2 OR MORE TIMES A DAY, AS PER INSTRUCTED
     Route: 061
     Dates: start: 202302, end: 202302
  2. Proactiv MD Ultra Gentle Cleanser [Concomitant]
     Indication: Product used for unknown indication
     Dosage: 1 DOSAGE FORM,  2 OR MORE TIMES A DAY, AS PER INSTRUCTED
     Route: 061
     Dates: start: 202302, end: 202302
  3. Proactiv MD Ultra Hydrating Moisturizer [Concomitant]
     Indication: Product used for unknown indication
     Dosage: 1 DOSAGE FORM,  2 OR MORE TIMES A DAY, AS PER INSTRUCTED
     Route: 061
     Dates: start: 202302, end: 202302
  4. Proactiv Post Acne Dark Mark Relief [Concomitant]
     Indication: Product used for unknown indication
     Dosage: 1 DOSAGE FORM,  2 OR MORE TIMES A DAY, AS PER INSTRUCTED
     Route: 061
     Dates: start: 202302, end: 202302
  5. Proactiv Post Acne Scar Gel [Concomitant]
     Indication: Product used for unknown indication
     Dosage: 1 DOSAGE FORM,  2 OR MORE TIMES A DAY, AS PER INSTRUCTED
     Route: 061
     Dates: start: 202302, end: 202302

REACTIONS (5)
  - Acne [Not Recovered/Not Resolved]
  - Skin hyperpigmentation [Not Recovered/Not Resolved]
  - Erythema [Not Recovered/Not Resolved]
  - Inappropriate schedule of product administration [Recovered/Resolved]
  - Overdose [Recovered/Resolved]

NARRATIVE: CASE EVENT DATE: 20230201
